FAERS Safety Report 26111434 (Version 2)
Quarter: 2025Q4

REPORT INFORMATION
  Report Type: Report from Study
  Country: KR (occurrence: KR)
  Receive Date: 20251202
  Receipt Date: 20251208
  Transmission Date: 20260118
  Serious: Yes (Hospitalization)
  Sender: ALEXION PHARMACEUTICALS
  Company Number: KR-ASTRAZENECA-202511GLO026411KR

PATIENT
  Sex: Female
  Weight: 45.5 kg

DRUGS (8)
  1. DURVALUMAB [Suspect]
     Active Substance: DURVALUMAB
     Indication: Effusion
     Dosage: 1120 MILLIGRAM
  2. OLAPARIB [Suspect]
     Active Substance: OLAPARIB
     Dosage: 600 MILLIGRAM
     Route: 065
  3. KCL [Concomitant]
     Active Substance: POTASSIUM CHLORIDE
     Indication: Hypokalaemia
     Dosage: 600 MILLIGRAM
     Dates: start: 20250809, end: 20250817
  4. ALBUMIN HUMAN [Concomitant]
     Active Substance: ALBUMIN HUMAN
     Indication: Hypoalbuminaemia
     Dosage: 20% 100ML
     Dates: start: 20250805, end: 20250809
  5. SODIUM CHLORIDE [Concomitant]
     Active Substance: SODIUM CHLORIDE
     Indication: Hyponatraemia
     Dosage: 500ML
     Dates: start: 20250808, end: 20250809
  6. CALCIUM GLUCONATE [Concomitant]
     Active Substance: CALCIUM GLUCONATE
     Indication: Hypocalcaemia
     Dosage: 20 MILLILITER
     Dates: start: 20250809, end: 20250825
  7. Penzal [Concomitant]
     Indication: Pyrexia
     Dosage: UNK
     Dates: start: 20250812, end: 20251114
  8. Paceta [Concomitant]
     Indication: Pyrexia
     Dosage: UNK
     Dates: start: 20250810, end: 20250813

REACTIONS (1)
  - General physical health deterioration [Recovered/Resolved]

NARRATIVE: CASE EVENT DATE: 20250815
